FAERS Safety Report 8432528-1 (Version None)
Quarter: 2012Q2

REPORT INFORMATION
  Report Type: 
  Country: None (occurrence: None)
  Receive Date: 20120613
  Receipt Date: 20120516
  Transmission Date: 20120825
  Serious: Yes (Death, Hospitalization, Other)
  Sender: FDA-Public Use
  Company Number: JP-GENZYME-FLUD-1001480

PATIENT

DRUGS (3)
  1. RITUXIMAB [Suspect]
     Indication: NON-HODGKIN'S LYMPHOMA RECURRENT
     Dosage: UNK
     Route: 065
     Dates: start: 20100901, end: 20110201
  2. FLUDARA [Suspect]
     Indication: NON-HODGKIN'S LYMPHOMA RECURRENT
     Dosage: UNK
     Route: 065
     Dates: start: 20100901, end: 20110201
  3. PREDNISOLONE [Suspect]
     Indication: NON-HODGKIN'S LYMPHOMA RECURRENT
     Dosage: UNK
     Route: 065

REACTIONS (7)
  - SMALL INTESTINAL PERFORATION [None]
  - JAUNDICE [None]
  - SEPSIS [None]
  - CHOLECYSTITIS [None]
  - STOMATITIS [None]
  - DIARRHOEA HAEMORRHAGIC [None]
  - PLEURISY [None]
